FAERS Safety Report 6188420-9 (Version None)
Quarter: 2009Q2

REPORT INFORMATION
  Report Type: 
  Country: None (occurrence: None)
  Receive Date: 20090513
  Receipt Date: 20081107
  Transmission Date: 20091009
  Serious: No
  Sender: FDA-Public Use
  Company Number: PR-BAYER-200838075NA

PATIENT
  Age: 54 Year
  Sex: Male

DRUGS (1)
  1. NEXAVAR [Suspect]
     Indication: HEPATIC NEOPLASM MALIGNANT
     Dosage: TOTAL DAILY DOSE: 400 MG  UNIT DOSE: 200 MG
     Route: 048
     Dates: start: 20081020

REACTIONS (2)
  - DYSURIA [None]
  - PROSTATITIS [None]
